FAERS Safety Report 19912083 (Version 2)
Quarter: 2022Q3

REPORT INFORMATION
  Report Type: Spontaneous
  Country: CH (occurrence: CH)
  Receive Date: 20211004
  Receipt Date: 20220701
  Transmission Date: 20221027
  Serious: Yes (Other)
  Sender: FDA-Public Use
  Company Number: CH-AMGEN-CHESP2021151286

PATIENT
  Age: 43 Year
  Sex: Female

DRUGS (2)
  1. APREMILAST [Suspect]
     Active Substance: APREMILAST
     Indication: Psoriatic arthropathy
     Dosage: 30 MILLIGRAM, BID
     Route: 065
  2. APREMILAST [Suspect]
     Active Substance: APREMILAST
     Dosage: UNK UNK, BID
     Route: 065

REACTIONS (5)
  - Platelet dysfunction [Unknown]
  - Drug ineffective [Unknown]
  - Injury [Unknown]
  - Nausea [Unknown]
  - Diarrhoea [Unknown]
